FAERS Safety Report 8871669 (Version 2)
Quarter: 2012Q4

REPORT INFORMATION
  Report Type: 
  Country: IT (occurrence: IT)
  Receive Date: 20121029
  Receipt Date: 20121106
  Transmission Date: 20130627
  Serious: Yes (Hospitalization)
  Sender: FDA-Public Use
  Company Number: PHHY2012IT096227

PATIENT
  Age: 47 Year
  Sex: Female

DRUGS (2)
  1. DICLOFENAC [Suspect]
     Indication: MUSCULOSKELETAL PAIN
     Dosage: 50 mg, Total dose
     Route: 048
     Dates: start: 20120930, end: 20120930
  2. NOVORAPID [Concomitant]
     Indication: DIABETES MELLITUS
     Route: 058

REACTIONS (1)
  - Abdominal pain upper [Recovering/Resolving]
